FAERS Safety Report 18372493 (Version 19)
Quarter: 2025Q1

REPORT INFORMATION
  Report Type: Spontaneous
  Country: US (occurrence: US)
  Receive Date: 20201012
  Receipt Date: 20250114
  Transmission Date: 20250409
  Serious: Yes (Hospitalization, Other)
  Sender: PFIZER
  Company Number: US-PFIZER INC-2020391067

PATIENT
  Age: 72 Year
  Sex: Female

DRUGS (8)
  1. XELJANZ XR [Suspect]
     Active Substance: TOFACITINIB CITRATE
     Indication: Rheumatoid arthritis
     Dosage: 11 MG, 1X/DAY
  2. XELJANZ XR [Suspect]
     Active Substance: TOFACITINIB CITRATE
  3. XELJANZ XR [Suspect]
     Active Substance: TOFACITINIB CITRATE
     Dosage: 11 MG, 1X/DAY
     Dates: start: 2019
  4. CALCIUM [Concomitant]
     Active Substance: CALCIUM
  5. DIMETHYL SULFONE [Concomitant]
     Active Substance: DIMETHYL SULFONE
  6. KRILL OIL [Concomitant]
     Active Substance: DIETARY SUPPLEMENT\KRILL OIL
  7. PROBIOTICS NOS [Concomitant]
     Active Substance: PROBIOTICS NOS
  8. VITAMIN C [Concomitant]
     Active Substance: ASCORBIC ACID

REACTIONS (18)
  - Limb injury [Recovered/Resolved]
  - Skin disorder [Recovered/Resolved]
  - Contusion [Recovered/Resolved]
  - Rheumatoid arthritis [Not Recovered/Not Resolved]
  - Nasopharyngitis [Recovering/Resolving]
  - Influenza [Unknown]
  - Neck pain [Unknown]
  - Back pain [Unknown]
  - Tinnitus [Unknown]
  - Blood glucose increased [Not Recovered/Not Resolved]
  - Tooth infection [Recovering/Resolving]
  - Abdominal discomfort [Recovering/Resolving]
  - Condition aggravated [Recovered/Resolved]
  - Rash [Recovered/Resolved]
  - Blood test abnormal [Recovering/Resolving]
  - Skin atrophy [Recovering/Resolving]
  - Arthralgia [Unknown]
  - Pain [Unknown]

NARRATIVE: CASE EVENT DATE: 20220101
